FAERS Safety Report 14623621 (Version 2)
Quarter: 2018Q2

REPORT INFORMATION
  Report Type: Spontaneous
  Country: US (occurrence: US)
  Receive Date: 20180312
  Receipt Date: 20180627
  Transmission Date: 20180711
  Serious: Yes (Hospitalization, Other)
  Sender: FDA-Public Use
  Company Number: US-SUN PHARMACEUTICAL INDUSTRIES LTD-2018US-165599

PATIENT
  Age: 39 Year
  Sex: Female

DRUGS (4)
  1. OXYCODONE [Suspect]
     Active Substance: OXYCODONE
     Indication: BACK PAIN
     Dosage: 120 MG (WAS DOUBLE HER PRESCRIBED DOSE)
     Route: 065
  2. ALPRAZOLAM. [Suspect]
     Active Substance: ALPRAZOLAM
     Indication: BACK PAIN
     Dosage: 1 MG
     Route: 065
  3. LORAZEPAM. [Suspect]
     Active Substance: LORAZEPAM
     Indication: BACK PAIN
     Dosage: 0.5 MG
     Route: 065
  4. DIPHENHYDRAMINE. [Suspect]
     Active Substance: DIPHENHYDRAMINE
     Indication: BACK PAIN
     Dosage: COUPLE OF PILLS (UNKNOWN DOSAGE)
     Route: 065

REACTIONS (6)
  - Somnolence [Recovering/Resolving]
  - Lethargy [Recovering/Resolving]
  - Loss of consciousness [Recovering/Resolving]
  - Hepatic enzyme increased [Unknown]
  - Overdose [Recovering/Resolving]
  - Compartment syndrome [Recovered/Resolved]
